FAERS Safety Report 9815918 (Version 1)
Quarter: 2014Q1

REPORT INFORMATION
  Report Type: Spontaneous
  Country: MX (occurrence: MX)
  Receive Date: 20140114
  Receipt Date: 20140114
  Transmission Date: 20141002
  Serious: Yes (Other)
  Sender: FDA-Public Use
  Company Number: PHHY2014MX003353

PATIENT
  Age: 89 Year
  Sex: Female
  Weight: 78 kg

DRUGS (8)
  1. DIOVAN [Suspect]
     Dosage: 1 UKN, DAILY
     Route: 048
  2. EXFORGE [Suspect]
     Dosage: 1 UKN, DAILY
     Route: 048
     Dates: end: 201307
  3. CO-DIOVAN [Suspect]
     Dosage: 1 UKN, DAILY
     Route: 048
     Dates: start: 2011, end: 201307
  4. PULMICORT TURBUHALER [Suspect]
     Indication: CHRONIC OBSTRUCTIVE PULMONARY DISEASE
     Dosage: UNK UKN, UNK
     Dates: start: 201311, end: 20140107
  5. ONBRIZE [Concomitant]
     Dosage: 300 UG, DAILY
     Route: 055
     Dates: start: 201310
  6. XATRAL [Concomitant]
     Dosage: 10 MG, DAILY
     Route: 048
     Dates: start: 201307
  7. LASILACTON [Concomitant]
     Dosage: 1 DF (50/20 MG), DAILY
     Route: 048
     Dates: start: 201307
  8. SPIRIVA [Concomitant]
     Dosage: 18 UG, DAILY
     Route: 055

REACTIONS (4)
  - Chronic obstructive pulmonary disease [Not Recovered/Not Resolved]
  - Respiratory failure [Not Recovered/Not Resolved]
  - Infarction [Recovered/Resolved]
  - Malaise [Unknown]
